FAERS Safety Report 6536906-7 (Version None)
Quarter: 2010Q1

REPORT INFORMATION
  Report Type: 
  Country: None (occurrence: None)
  Receive Date: 20100105
  Receipt Date: 20091221
  Transmission Date: 20100710
  Serious: Yes (Hospitalization, Other)
  Sender: FDA-Public Use
  Company Number: JHP200900468

PATIENT
  Age: 50 Year
  Sex: Female

DRUGS (2)
  1. KETALAR [Suspect]
     Indication: ANALGESIC THERAPY
     Dosage: 50 MG, QID, ORAL, 200 MG,5X PER DAY,ORAL
     Route: 048
  2. ANALGESICS [Concomitant]

REACTIONS (5)
  - CYSTITIS GLANDULARIS [None]
  - HAEMATURIA [None]
  - PERINEAL PAIN [None]
  - POLLAKIURIA [None]
  - PYURIA [None]
